FAERS Safety Report 20573777 (Version 1)
Quarter: 2022Q1

REPORT INFORMATION
  Report Type: Spontaneous
  Country: US (occurrence: US)
  Receive Date: 20220309
  Receipt Date: 20220309
  Transmission Date: 20220423
  Serious: Yes (Other)
  Sender: FDA-Public Use
  Company Number: US-009507513-2009USA007612

PATIENT
  Age: 34 Year
  Sex: Female
  Weight: 70.8 kg

DRUGS (1)
  1. NEXPLANON [Suspect]
     Active Substance: ETONOGESTREL
     Indication: Contraception
     Dosage: IMPLANT (DOSE REPORTED AS 68 MILLIGRAM) IN LEFT UPPER ARM
     Route: 059
     Dates: start: 20170907, end: 20201009

REACTIONS (5)
  - Device breakage [Recovered/Resolved]
  - Encapsulation reaction [Unknown]
  - Implant site fibrosis [Unknown]
  - Complication of device removal [Recovered/Resolved]
  - Incorrect product administration duration [Unknown]

NARRATIVE: CASE EVENT DATE: 20200904
